FAERS Safety Report 16839010 (Version 1)
Quarter: 2019Q3

REPORT INFORMATION
  Report Type: Spontaneous
  Country: IL (occurrence: IL)
  Receive Date: 20190923
  Receipt Date: 20190923
  Transmission Date: 20191005
  Serious: Yes (Other)
  Sender: FDA-Public Use
  Company Number: IL-TEVA-2019-IL-1113424

PATIENT
  Age: 81 Year
  Sex: Female

DRUGS (1)
  1. MOXYPEN PER OS / MOXYPEN ? FORTE 250 MG POWDER FOR SUSPENSION [Suspect]
     Active Substance: AMOXICILLIN
     Route: 065
     Dates: start: 20190227

REACTIONS (3)
  - Rash [Unknown]
  - Loss of consciousness [Unknown]
  - Pruritus [Unknown]
